FAERS Safety Report 21281708 (Version 2)
Quarter: 2022Q3

REPORT INFORMATION
  Report Type: Report from Study
  Country: FR (occurrence: FR)
  Receive Date: 20220901
  Receipt Date: 20220929
  Transmission Date: 20221027
  Serious: Yes (Hospitalization)
  Sender: FDA-Public Use
  Company Number: FR-ABBVIE-22K-056-4524063-00

PATIENT
  Age: 67 Year
  Sex: Male

DRUGS (2)
  1. CARBIDOPA\LEVODOPA [Suspect]
     Active Substance: CARBIDOPA\LEVODOPA
     Indication: Parkinson^s disease
     Dosage: CONTINUOUS FLOW RATE: 5.2 ML/H
     Route: 050
     Dates: start: 202010, end: 20220920
  2. CARBIDOPA\LEVODOPA [Suspect]
     Active Substance: CARBIDOPA\LEVODOPA
     Dosage: CONTINUOUS FLOW RATE: 6 ML/H
     Route: 050
     Dates: start: 20220920

REACTIONS (8)
  - Femur fracture [Not Recovered/Not Resolved]
  - Weight decreased [Unknown]
  - Fall [Not Recovered/Not Resolved]
  - Dysphonia [Unknown]
  - Hypophagia [Unknown]
  - Dysarthria [Unknown]
  - Gait disturbance [Unknown]
  - Balance disorder [Unknown]

NARRATIVE: CASE EVENT DATE: 20220101
